FAERS Safety Report 20407467 (Version 1)
Quarter: 2022Q1

REPORT INFORMATION
  Report Type: Spontaneous
  Country: CZ (occurrence: CZ)
  Receive Date: 20220131
  Receipt Date: 20220131
  Transmission Date: 20220424
  Serious: Yes (Other)
  Sender: FDA-Public Use
  Company Number: US-ALLERGAN-2203492US

PATIENT
  Sex: Male
  Weight: 78 kg

DRUGS (7)
  1. SILODOSIN [Suspect]
     Active Substance: SILODOSIN
     Indication: Product used for unknown indication
     Dosage: 8 MG, QHS
     Route: 048
     Dates: start: 20211209, end: 20211213
  2. TARKA [Concomitant]
     Active Substance: TRANDOLAPRIL\VERAPAMIL HYDROCHLORIDE
     Indication: Hypertension
     Dosage: 1 DF, QAM, AFTER MEAL
     Route: 048
  3. SULODEXIDE [Concomitant]
     Active Substance: SULODEXIDE
     Indication: Polyneuropathy
     Dosage: 2 DF, Q12H
     Route: 048
  4. MILGAMMA N [BENFOTIAMINE;CYANOCOBALAMIN;PYRIDOXINE HYDROCHLORIDE] [Concomitant]
     Indication: Polyneuropathy
     Dosage: TWICE WEEKLY IN THE MORNING AFTER BREAKFAST
     Route: 048
  5. RHEFLUIN [Concomitant]
     Indication: Hypertension
     Dosage: 1/2 EVERY OTHER DAY IN THE MORNING AFTER MEAL
     Route: 048
  6. .ALPHA.-LIPOIC ACID [Concomitant]
     Active Substance: .ALPHA.-LIPOIC ACID
     Indication: Polyneuropathy
     Dosage: TWICE WEEKLY 30 MINUTES BEFORE MEAL
     Route: 048
  7. GABAPENTIN [Concomitant]
     Active Substance: GABAPENTIN
     Indication: Polyneuropathy
     Dosage: 400 MG, Q8HR, AFTER MEAL
     Route: 048

REACTIONS (2)
  - Pain in extremity [Recovering/Resolving]
  - Condition aggravated [Recovering/Resolving]

NARRATIVE: CASE EVENT DATE: 20211211
